FAERS Safety Report 7473744-5 (Version None)
Quarter: 2011Q2

REPORT INFORMATION
  Report Type: 
  Country: None (occurrence: None)
  Receive Date: 20110511
  Receipt Date: 20110505
  Transmission Date: 20111010
  Serious: Yes (Hospitalization, Other)
  Sender: FDA-Public Use
  Company Number: US-BRISTOL-MYERS SQUIBB COMPANY-15647365

PATIENT
  Age: 43 Year
  Sex: Male

DRUGS (6)
  1. CLARITIN [Concomitant]
     Dates: start: 20080715
  2. FLUCONAZOLE [Concomitant]
  3. IMIPENEM [Concomitant]
  4. ZYVOX [Concomitant]
  5. YERVOY [Suspect]
     Indication: MALIGNANT MELANOMA
     Dosage: 1DF: 366.9 UNITS NOS,28FEB2011.
     Route: 042
     Dates: start: 20110208
  6. BENICAR [Concomitant]
     Dates: start: 20080715

REACTIONS (5)
  - INTESTINAL PERFORATION [None]
  - HYPOTENSION [None]
  - WOUND INFECTION [None]
  - COLITIS [None]
  - DIARRHOEA [None]
